FAERS Safety Report 25024645 (Version 1)
Quarter: 2025Q1

REPORT INFORMATION
  Report Type: Spontaneous
  Country: AR (occurrence: AR)
  Receive Date: 20250228
  Receipt Date: 20250228
  Transmission Date: 20250408
  Serious: Yes (Other)
  Sender: BIOMARIN
  Company Number: AR-BIOMARINAP-AR-2025-164081

PATIENT

DRUGS (1)
  1. VOXZOGO [Suspect]
     Active Substance: VOSORITIDE
     Indication: Osteochondrodysplasia
     Dosage: UNK, QD
     Route: 058
     Dates: start: 20250210

REACTIONS (1)
  - Spinal cord compression [Recovering/Resolving]

NARRATIVE: CASE EVENT DATE: 20250214
